FAERS Safety Report 6312002-9 (Version None)
Quarter: 2009Q3

REPORT INFORMATION
  Report Type: 
  Country: None (occurrence: None)
  Receive Date: 20090817
  Receipt Date: 20090326
  Transmission Date: 20100115
  Serious: No
  Sender: FDA-Public Use
  Company Number: US-BRISTOL-MYERS SQUIBB COMPANY-14593115

PATIENT
  Sex: Female

DRUGS (2)
  1. ESTRACE [Suspect]
     Dates: start: 20080101, end: 20090301
  2. ESTRACE [Suspect]
     Indication: VULVOVAGINAL DRYNESS
     Dosage: DOSAGE FORM /STRENGTH:0.01%
     Dates: start: 20081001, end: 20081201

REACTIONS (6)
  - ABSCESS [None]
  - APHONIA [None]
  - COUGH [None]
  - NASOPHARYNGITIS [None]
  - PARAESTHESIA [None]
  - WEIGHT DECREASED [None]
